FAERS Safety Report 5640345-0 (Version None)
Quarter: 2008Q1

REPORT INFORMATION
  Report Type: 
  Country: None (occurrence: None)
  Receive Date: 20080227
  Receipt Date: 20080104
  Transmission Date: 20080703
  Serious: No
  Sender: FDA-Public Use
  Company Number: US-BAXTER-2008BH000202

PATIENT
  Age: 58 Year
  Sex: Female
  Weight: 66 kg

DRUGS (8)
  1. HEPARIN SODIUM [Suspect]
     Indication: PROPHYLAXIS
     Route: 010
     Dates: start: 20080104, end: 20080104
  2. HEPARIN SODIUM [Suspect]
     Route: 010
     Dates: start: 20080104, end: 20080104
  3. HEPARIN SODIUM [Suspect]
     Route: 010
     Dates: start: 20080104, end: 20080104
  4. HEPARIN SODIUM [Suspect]
     Route: 010
     Dates: start: 20080104, end: 20080104
  5. HEPARIN SODIUM [Suspect]
     Route: 010
     Dates: start: 20080104, end: 20080104
  6. HEPARIN SODIUM [Suspect]
     Route: 010
     Dates: start: 20080104, end: 20080104
  7. HEPARIN SODIUM [Suspect]
     Route: 010
     Dates: start: 20080104, end: 20080104
  8. SODIUM CHLORIDE INJ [Concomitant]
     Indication: DRUG USE FOR UNKNOWN INDICATION
     Dosage: DOSE UNIT:UNKNOWN
     Route: 010
     Dates: start: 20071201, end: 20071201

REACTIONS (6)
  - ABDOMINAL PAIN UPPER [None]
  - COUGH [None]
  - DRY SKIN [None]
  - DYSPNOEA [None]
  - PARAESTHESIA ORAL [None]
  - SKIN TIGHTNESS [None]
